FAERS Safety Report 17501195 (Version 1)
Quarter: 2020Q1

REPORT INFORMATION
  Report Type: Spontaneous
  Country: AT (occurrence: AT)
  Receive Date: 20200305
  Receipt Date: 20200305
  Transmission Date: 20200409
  Serious: Yes (Other)
  Sender: FDA-Public Use
  Company Number: AT-PFIZER INC-2020092858

PATIENT
  Sex: Male

DRUGS (1)
  1. CYPROSTOL [Suspect]
     Active Substance: MISOPROSTOL
     Indication: INDUCED LABOUR
     Dosage: UNK
     Route: 064
     Dates: start: 20191003

REACTIONS (2)
  - Maternal exposure during pregnancy [Unknown]
  - Cardiac arrest neonatal [Recovered/Resolved]

NARRATIVE: CASE EVENT DATE: 20191003
